FAERS Safety Report 10185312 (Version 1)
Quarter: 2014Q2

REPORT INFORMATION
  Report Type: Spontaneous
  Country: US (occurrence: US)
  Receive Date: 20140521
  Receipt Date: 20140521
  Transmission Date: 20141212
  Serious: No
  Sender: FDA-Public Use
  Company Number: US-PFIZER INC-2014135417

PATIENT
  Age: 53 Year
  Sex: Female
  Weight: 58.5 kg

DRUGS (5)
  1. CORTISONE [Suspect]
     Indication: SPONDYLITIS
     Dosage: UNK
  2. ACIPHEX [Concomitant]
     Indication: ABDOMINAL DISCOMFORT
     Dosage: UNK
  3. CLONAZEPAM [Concomitant]
     Indication: ANXIETY
     Dosage: UNK
  4. PROAIR [Concomitant]
     Indication: DYSPNOEA
     Dosage: UNK
  5. ARTHROTEC [Concomitant]
     Indication: SPONDYLITIS
     Dosage: 50 MG, 2X/DAY

REACTIONS (1)
  - Drug effect incomplete [Unknown]
